FAERS Safety Report 23060947 (Version 4)
Quarter: 2024Q1

REPORT INFORMATION
  Report Type: Report from Study
  Country: US (occurrence: US)
  Receive Date: 20231012
  Receipt Date: 20240123
  Transmission Date: 20240409
  Serious: No
  Sender: FDA-Public Use
  Company Number: US-ACADIA PHARMACEUTICALS INC.-ACA-2023-TRF-004218

PATIENT
  Age: 18 Year
  Sex: Female

DRUGS (10)
  1. DAYBUE [Suspect]
     Active Substance: TROFINETIDE
     Indication: Rett syndrome
     Dosage: 50 MILLILITER, BID VIA G-TUBE
  2. DAYBUE [Suspect]
     Active Substance: TROFINETIDE
     Dosage: 42 MILLILITER, BID VIA G-TUBE
     Dates: start: 20230927
  3. DAYBUE [Suspect]
     Active Substance: TROFINETIDE
     Dosage: 15 MILLILITER, BID VIA G-TUBE
     Dates: start: 20231018
  4. DAYBUE [Suspect]
     Active Substance: TROFINETIDE
     Dosage: 50 MILLILITER, BID
     Dates: start: 20230926, end: 20231128
  5. MIRALAX [Suspect]
     Active Substance: POLYETHYLENE GLYCOL 3350
     Dosage: QHS
     Dates: end: 20230924
  6. MIRALAX [Suspect]
     Active Substance: POLYETHYLENE GLYCOL 3350
     Dosage: QHS
     Dates: end: 20230926
  7. TRAZODONE [Concomitant]
     Active Substance: TRAZODONE HYDROCHLORIDE
     Dosage: 50 MILLIGRAM QHS
  8. LEVONORGESTREL [Concomitant]
     Active Substance: LEVONORGESTREL
  9. SCOPOLAMINE HYDROBROMIDE [Concomitant]
     Active Substance: SCOPOLAMINE HYDROBROMIDE
  10. GUANFACINE [Concomitant]
     Active Substance: GUANFACINE

REACTIONS (6)
  - Decubitus ulcer [Recovered/Resolved]
  - Somnolence [Not Recovered/Not Resolved]
  - Prescribed underdose [Not Recovered/Not Resolved]
  - Drooling [Recovered/Resolved]
  - Diarrhoea [Not Recovered/Not Resolved]
  - Diarrhoea [Not Recovered/Not Resolved]

NARRATIVE: CASE EVENT DATE: 20230901
